FAERS Safety Report 18273237 (Version 1)
Quarter: 2020Q3

REPORT INFORMATION
  Report Type: Report from Study
  Country: BR (occurrence: BR)
  Receive Date: 20200916
  Receipt Date: 20200916
  Transmission Date: 20201103
  Serious: Yes (Other)
  Sender: FDA-Public Use
  Company Number: NVSC2020BR250827

PATIENT
  Sex: Female

DRUGS (3)
  1. FASLODEX [Suspect]
     Active Substance: FULVESTRANT
     Indication: PRODUCT USED FOR UNKNOWN INDICATION
     Dosage: 250 ML (EVERY 28 DAYS) (BUTTOCK)
     Route: 065
     Dates: start: 202003
  2. LOSARTAN. [Suspect]
     Active Substance: LOSARTAN
     Indication: HYPERTENSION
     Dosage: 1 DF, QD (2 YEARS AGO)
     Route: 065
  3. LOSARTAN. [Suspect]
     Active Substance: LOSARTAN
     Dosage: 2 DF, QD (2 MONTHS AGO)
     Route: 065

REACTIONS (9)
  - Chest pain [Unknown]
  - Dyspnoea [Unknown]
  - Malaise [Unknown]
  - Bone cancer [Unknown]
  - Hypertension [Unknown]
  - Anxiety [Recovered/Resolved]
  - Breast cancer [Unknown]
  - Visual impairment [Unknown]
  - Bone pain [Unknown]
